FAERS Safety Report 10977461 (Version 3)
Quarter: 2015Q2

REPORT INFORMATION
  Report Type: Report from Study
  Country: CH (occurrence: CH)
  Receive Date: 20150402
  Receipt Date: 20150424
  Transmission Date: 20150821
  Serious: Yes (Hospitalization)
  Sender: FDA-Public Use
  Company Number: CH-009507513-1503CHE013299

PATIENT
  Age: 69 Year
  Sex: Male

DRUGS (12)
  1. FORTECORTIN [Suspect]
     Active Substance: DEXAMETHASONE
     Dosage: DAILY DOSE: 1 MG
     Route: 065
     Dates: start: 20130220
  2. ASPIRIN CARDIO [Suspect]
     Active Substance: ASPIRIN
     Indication: PRODUCT USED FOR UNKNOWN INDICATION
     Dosage: 100 MG, QD
     Route: 065
     Dates: start: 2008, end: 20130324
  3. SIMCORA [Concomitant]
     Active Substance: SIMVASTATIN
     Dosage: 20 MG, UNK
     Dates: start: 2008
  4. FORTECORTIN [Suspect]
     Active Substance: DEXAMETHASONE
     Indication: PRODUCT USED FOR UNKNOWN INDICATION
     Dosage: DAILY DOSE: 1 MG
     Route: 065
     Dates: start: 20130108, end: 20130131
  5. VEMURAFENIB [Suspect]
     Active Substance: VEMURAFENIB
     Dosage: 720 MG, BID (2 IN 1 D)
     Route: 048
     Dates: start: 20111027, end: 20120120
  6. VEMURAFENIB [Suspect]
     Active Substance: VEMURAFENIB
     Dosage: 720 MG, BID (2 IN 1 D)
     Route: 048
     Dates: start: 20120202, end: 20121126
  7. SERTRALINE HYDROCHLORIDE. [Concomitant]
     Active Substance: SERTRALINE HYDROCHLORIDE
     Dosage: 50 MG, UNK
     Dates: start: 2011
  8. VEMURAFENIB [Suspect]
     Active Substance: VEMURAFENIB
     Dosage: 480 MG, BID (2 IN 1 D)
     Route: 048
     Dates: start: 20130330
  9. MK-0000 [Suspect]
     Active Substance: INVESTIGATIONAL PRODUCT
     Indication: PRODUCT USED FOR UNKNOWN INDICATION
     Route: 065
  10. VEMURAFENIB [Suspect]
     Active Substance: VEMURAFENIB
     Indication: MALIGNANT MELANOMA
     Dosage: 960 MG, BID (2 IN 1 D)
     Route: 048
     Dates: start: 20110817, end: 20111014
  11. VEMURAFENIB [Suspect]
     Active Substance: VEMURAFENIB
     Dosage: 480 MG, BID (2 IN 1 D)
     Route: 048
     Dates: start: 20121206, end: 20130323
  12. DAFALGAN [Concomitant]
     Active Substance: ACETAMINOPHEN
     Dosage: 500 MG, UNK
     Dates: start: 20111207

REACTIONS (3)
  - Fatigue [Unknown]
  - Anaemia [Recovered/Resolved]
  - Asthenia [Unknown]

NARRATIVE: CASE EVENT DATE: 20130324
